FAERS Safety Report 7573079-6 (Version None)
Quarter: 2011Q2

REPORT INFORMATION
  Report Type: 
  Country: None (occurrence: None)
  Receive Date: 20110627
  Receipt Date: 20110613
  Transmission Date: 20111010
  Serious: Yes (Hospitalization)
  Sender: FDA-Public Use
  Company Number: TR-MYLANLABS-2011S1012416

PATIENT
  Age: 50 Year
  Sex: Male

DRUGS (2)
  1. LANSOPRAZOLE [Suspect]
     Indication: DYSPEPSIA
     Route: 048
  2. CORASPIN [Concomitant]
     Dosage: 100MG
     Route: 065

REACTIONS (1)
  - KOUNIS SYNDROME [None]
